FAERS Safety Report 8604356 (Version 2)
Quarter: 2012Q4

REPORT INFORMATION
  Report Type: 
  Country: DE (occurrence: DE)
  Receive Date: 20120608
  Receipt Date: 20120831
  Transmission Date: 20130627
  Serious: Yes (Death, Hospitalization)
  Sender: FDA-Public Use
  Company Number: DE-RANBAXY-2009RR-27522

PATIENT
  Age: 89 Year
  Sex: Female
  Weight: 71 kg

DRUGS (8)
  1. MOXIFLOXACIN [Suspect]
     Indication: PNEUMONIA
     Dosage: 400 mg, qd
     Route: 048
     Dates: start: 20090430, end: 20090501
  2. CEFOTIAM HYDROCHLORIDE [Suspect]
     Indication: PNEUMONIA
     Dosage: 2 g, UNK
     Route: 042
     Dates: start: 20090425, end: 20090429
  3. PANTOPRAZOLE [Interacting]
     Indication: PROPHYLAXIS AGAINST GASTROINTESTINAL ULCER
     Dosage: 40 mg, bid
     Route: 048
     Dates: start: 200801, end: 20090506
  4. METRONIDAZOLE [Concomitant]
     Indication: PNEUMONIA
     Dosage: 500 mg, tid
     Route: 042
     Dates: start: 20090425, end: 20090429
  5. CALCILAC KT [Concomitant]
     Indication: BREAST CANCER METASTATIC
     Dosage: 1 DF, UNK
     Route: 048
     Dates: start: 20090409, end: 20090506
  6. FENTANYL [Concomitant]
     Indication: BREAST CANCER METASTATIC
     Dosage: 4.8 mg, tid
     Route: 062
     Dates: start: 200801, end: 20090506
  7. METAMIZOLE [Concomitant]
     Indication: PAIN
     Dosage: 750 mg, UNK
     Route: 048
     Dates: start: 200801, end: 20090506
  8. TORASEMIDE [Concomitant]
     Indication: RENAL FAILURE CHRONIC
     Dosage: 10 mg, UNK
     Route: 048
     Dates: start: 20090409, end: 20090501

REACTIONS (2)
  - Pseudomembranous colitis [Fatal]
  - Drug interaction [Fatal]
